FAERS Safety Report 7627700-4 (Version None)
Quarter: 2011Q3

REPORT INFORMATION
  Report Type: 
  Country: None (occurrence: None)
  Receive Date: 20110721
  Receipt Date: 20110718
  Transmission Date: 20111222
  Serious: Yes (Hospitalization, Other)
  Sender: FDA-Public Use
  Company Number: FR-PFIZER INC-2011161682

PATIENT
  Age: 78 Year
  Sex: Female

DRUGS (4)
  1. OMEPRAZOLE [Suspect]
     Dosage: 1 DF, 1X/DAY
     Route: 048
     Dates: end: 20110527
  2. VALSARTAN [Suspect]
     Dosage: 1 DF, 1X/DAY
     Route: 048
     Dates: end: 20110527
  3. DIAMICRON [Suspect]
     Dosage: UNK
     Route: 048
     Dates: end: 20110527
  4. ATORVASTATIN CALCIUM [Suspect]
     Dosage: 1 DF, 1X/DAY
     Route: 048
     Dates: end: 20110527

REACTIONS (3)
  - CYTOLYTIC HEPATITIS [None]
  - OEDEMA PERIPHERAL [None]
  - ORAL CANDIDIASIS [None]
